FAERS Safety Report 8793845 (Version 3)
Quarter: 2013Q1

REPORT INFORMATION
  Report Type: Report from Study
  Country: US (occurrence: US)
  Receive Date: 20120917
  Receipt Date: 20130313
  Transmission Date: 20140127
  Serious: Yes (Hospitalization)
  Sender: FDA-Public Use
  Company Number: US-JNJFOC-20120905434

PATIENT
  Age: 13 Year
  Sex: Female
  Weight: 34.7 kg

DRUGS (11)
  1. REMICADE [Suspect]
     Indication: INFLAMMATORY BOWEL DISEASE
     Route: 042
  2. REMICADE [Suspect]
     Indication: INFLAMMATORY BOWEL DISEASE
     Route: 042
     Dates: start: 20110826, end: 20111006
  3. PREDNISONE [Concomitant]
     Route: 065
  4. METHOTREXATE [Concomitant]
     Route: 065
  5. LANSOPRAZOLE [Concomitant]
     Route: 065
  6. COLACE [Concomitant]
     Route: 065
  7. FOLIC ACID [Concomitant]
     Route: 065
  8. ZOFRAN [Concomitant]
  9. MULTIVITAMINS [Concomitant]
  10. 5-ASA [Concomitant]
     Route: 048
  11. BENADRYL [Concomitant]

REACTIONS (1)
  - Small intestinal obstruction [Recovered/Resolved with Sequelae]
